FAERS Safety Report 11972565 (Version 3)
Quarter: 2016Q1

REPORT INFORMATION
  Report Type: Spontaneous
  Country: US (occurrence: US)
  Receive Date: 20160128
  Receipt Date: 20160304
  Transmission Date: 20160526
  Serious: Yes (Hospitalization)
  Sender: FDA-Public Use
  Company Number: US-PFIZER INC-2016021782

PATIENT
  Age: 78 Year
  Sex: Female
  Weight: 61.22 kg

DRUGS (5)
  1. XANAX [Concomitant]
     Active Substance: ALPRAZOLAM
     Dosage: UNK
  2. LOMOTIL [Concomitant]
     Active Substance: ATROPINE SULFATE\DIPHENOXYLATE HYDROCHLORIDE
     Dosage: UNK
  3. PROTONIX [Suspect]
     Active Substance: PANTOPRAZOLE SODIUM
     Indication: ABDOMINAL DISCOMFORT
     Dosage: 40 MG, 2X/DAY
     Route: 048
  4. FEMARA [Concomitant]
     Active Substance: LETROZOLE
     Dosage: UNK
  5. XOPENEX [Concomitant]
     Active Substance: LEVALBUTEROL HYDROCHLORIDE
     Dosage: UNK

REACTIONS (6)
  - Malaise [Unknown]
  - Breast cyst [Recovered/Resolved]
  - Stress [Unknown]
  - Headache [Unknown]
  - Anaemia [Unknown]
  - Peptic ulcer haemorrhage [Unknown]

NARRATIVE: CASE EVENT DATE: 201512
